FAERS Safety Report 25121780 (Version 1)
Quarter: 2025Q1

REPORT INFORMATION
  Report Type: Spontaneous
  Country: US (occurrence: US)
  Receive Date: 20250326
  Receipt Date: 20250326
  Transmission Date: 20250408
  Serious: No
  Sender: BRISTOL-MYERS SQUIBB COMPANY
  Company Number: US-BRISTOL-MYERS SQUIBB COMPANY-2025-044752

PATIENT
  Age: 82 Year
  Sex: Male

DRUGS (1)
  1. LENALIDOMIDE [Suspect]
     Active Substance: LENALIDOMIDE
     Indication: Metastases to lung
     Dosage: TAKE 1 CAPSULE BY MOUTH 3 TIMES A WEEK EVERY MONDAY, WEDNESDAY AND FRIDAY FOR 3 WEEKS, THEN 1 WEEK O
     Route: 048

REACTIONS (2)
  - Nasopharyngitis [Recovering/Resolving]
  - Off label use [Unknown]
